FAERS Safety Report 26133278 (Version 2)
Quarter: 2025Q4

REPORT INFORMATION
  Report Type: Report from Study
  Country: JP (occurrence: JP)
  Receive Date: 20251209
  Receipt Date: 20251224
  Transmission Date: 20260117
  Serious: No
  Sender: UCB
  Company Number: JP-UCBJ-CD202515909UCBPHAPROD

PATIENT
  Age: 20 Year
  Weight: 65 kg

DRUGS (6)
  1. FENFLURAMINE HYDROCHLORIDE [Suspect]
     Active Substance: FENFLURAMINE HYDROCHLORIDE
     Indication: Lennox-Gastaut syndrome
     Dosage: 0.25 MILLIGRAM/KILOGRAM, 2X/DAY (BID)
     Route: 061
  2. FENFLURAMINE HYDROCHLORIDE [Suspect]
     Active Substance: FENFLURAMINE HYDROCHLORIDE
     Dosage: 0.013 MILLIGRAM/KILOGRAM, 2X/DAY (BID)
     Route: 061
  3. LAMICTAL [Concomitant]
     Active Substance: LAMOTRIGINE
     Indication: Lennox-Gastaut syndrome
     Dosage: 225 MILLIGRAM, ONCE DAILY (QD)
     Route: 061
  4. VALPROATE SODIUM [Concomitant]
     Active Substance: VALPROATE SODIUM
     Indication: Lennox-Gastaut syndrome
     Dosage: 800 MILLIGRAM, ONCE DAILY (QD)
     Route: 061
  5. INOVELON [Concomitant]
     Active Substance: RUFINAMIDE
     Indication: Lennox-Gastaut syndrome
     Dosage: 800 MILLIGRAM, ONCE DAILY (QD)
     Route: 061
  6. FYCOMPA [Concomitant]
     Active Substance: PERAMPANEL
     Indication: Lennox-Gastaut syndrome
     Dosage: 5 MILLIGRAM, ONCE DAILY (QD)
     Route: 061

REACTIONS (4)
  - Somnolence [Recovered/Resolved]
  - Prescribed overdose [Unknown]
  - Prescribed underdose [Unknown]
  - Off label use [Unknown]
